FAERS Safety Report 5714210-4 (Version None)
Quarter: 2008Q2

REPORT INFORMATION
  Report Type: 
  Country: None (occurrence: None)
  Receive Date: 20080423
  Receipt Date: 20070302
  Transmission Date: 20081010
  Serious: No
  Sender: FDA-Public Use
  Company Number: US-KINGPHARMUSA00001-K200700243

PATIENT

DRUGS (1)
  1. SKELAXIN [Suspect]
     Indication: BACK PAIN

REACTIONS (1)
  - HAEMOLYTIC ANAEMIA [None]
